FAERS Safety Report 16536520 (Version 2)
Quarter: 2019Q3

REPORT INFORMATION
  Report Type: Spontaneous
  Country: IT (occurrence: IT)
  Receive Date: 20190706
  Receipt Date: 20190920
  Transmission Date: 20191004
  Serious: Yes (Other)
  Sender: FDA-Public Use
  Company Number: IT-SUN PHARMACEUTICAL INDUSTRIES LTD-2019RR-212834

PATIENT
  Age: 58 Year
  Sex: Male
  Weight: 84 kg

DRUGS (2)
  1. CISPLATIN. [Suspect]
     Active Substance: CISPLATIN
     Indication: URETERIC CANCER
     Dosage: CYCLICAL
     Route: 042
     Dates: start: 20190410, end: 20190529
  2. GEMCITABINE. [Suspect]
     Active Substance: GEMCITABINE
     Indication: URETERIC CANCER
     Dosage: CYCLICAL
     Route: 042
     Dates: start: 20190410, end: 20190529

REACTIONS (2)
  - Neutropenia [Unknown]
  - Leukopenia [Unknown]

NARRATIVE: CASE EVENT DATE: 20190604
